FAERS Safety Report 16925223 (Version 4)
Quarter: 2019Q4

REPORT INFORMATION
  Report Type: Report from Study
  Country: DE (occurrence: DE)
  Receive Date: 20191016
  Receipt Date: 20191220
  Transmission Date: 20200122
  Serious: Yes (Hospitalization, Other)
  Sender: FDA-Public Use
  Company Number: DE-UCBSA-2019039990

PATIENT
  Sex: Female

DRUGS (1)
  1. CERTOLIZUMAB PEGOL AUTOCLICKS [Suspect]
     Active Substance: CERTOLIZUMAB PEGOL
     Indication: RHEUMATOID ARTHRITIS
     Dosage: 200 MILLIGRAM, EV 2 WEEKS(QOW)
     Route: 058
     Dates: start: 20190521, end: 20191007

REACTIONS (4)
  - Adrenocortical insufficiency acute [Unknown]
  - Pneumonia [Recovered/Resolved]
  - Osteitis [Unknown]
  - Infection masked [Unknown]

NARRATIVE: CASE EVENT DATE: 20190912
